FAERS Safety Report 6418405-6 (Version None)
Quarter: 2009Q4

REPORT INFORMATION
  Report Type: 
  Country: None (occurrence: None)
  Receive Date: 20091026
  Receipt Date: 20091013
  Transmission Date: 20100525
  Serious: Yes (Death)
  Sender: FDA-Public Use
  Company Number: ADR37492009

PATIENT
  Age: 80 Year
  Sex: Female

DRUGS (9)
  1. SIMVASTATIN [Suspect]
     Dosage: 40 MG, 1/1 DAYS, ORAL
     Route: 048
  2. OMEPRAZOLE (SUSPECT) [Concomitant]
  3. ADALAT [Concomitant]
  4. ASPIRIN [Concomitant]
  5. DIPYRIDAMOLE [Concomitant]
  6. GAVISCON [Concomitant]
  7. METOPROLOL [Concomitant]
  8. PARACETAMOL [Concomitant]
  9. PERINDOPRIL [Concomitant]

REACTIONS (1)
  - DYSPHAGIA [None]
